FAERS Safety Report 16479150 (Version 3)
Quarter: 2025Q3

REPORT INFORMATION
  Report Type: Spontaneous
  Country: US (occurrence: US)
  Receive Date: 20190626
  Receipt Date: 20250730
  Transmission Date: 20251021
  Serious: Yes (Other)
  Sender: AMNEAL
  Company Number: US-SAOL THERAPEUTICS-2018SAO01022

PATIENT
  Age: 17 Year
  Sex: Male

DRUGS (5)
  1. BACLOFEN [Suspect]
     Active Substance: BACLOFEN
     Indication: Muscle spasticity
     Dosage: UNK UNK, 1X/DAY
     Route: 065
  2. BACLOFEN [Suspect]
     Active Substance: BACLOFEN
     Dosage: 999.1 MICROGRAM, DAILY
     Route: 037
  3. BACLOFEN [Suspect]
     Active Substance: BACLOFEN
     Dosage: 450 MICROGRAM, DAILY
     Route: 037
  4. BACLOFEN [Suspect]
     Active Substance: BACLOFEN
     Route: 037
  5. BACLOFEN [Suspect]
     Active Substance: BACLOFEN
     Dosage: 494 MICROGRAM, DAILY
     Route: 037

REACTIONS (3)
  - Drug withdrawal syndrome [Recovered/Resolved]
  - Device programming error [Unknown]
  - Device leakage [Unknown]

NARRATIVE: CASE EVENT DATE: 20180907
